FAERS Safety Report 8525249-8 (Version None)
Quarter: 2012Q3

REPORT INFORMATION
  Report Type: 
  Country: None (occurrence: None)
  Receive Date: 20120720
  Receipt Date: 20120717
  Transmission Date: 20120928
  Serious: Yes (Hospitalization)
  Sender: FDA-Public Use
  Company Number: PHHY2012BR061881

PATIENT
  Sex: Male
  Weight: 60 kg

DRUGS (2)
  1. DIOVAN [Suspect]
     Dosage: 80 MG (HALF OF 160 MG), UNK
     Route: 048
  2. DIOVAN [Suspect]
     Indication: HYPERTENSION
     Dosage: 160 MG, DAILY
     Route: 048

REACTIONS (6)
  - CHEST PAIN [None]
  - ASTHENIA [None]
  - WRONG TECHNIQUE IN DRUG USAGE PROCESS [None]
  - GASTROINTESTINAL DISORDER [None]
  - FEEDING DISORDER [None]
  - INFARCTION [None]
